FAERS Safety Report 15110335 (Version 1)
Quarter: 2018Q3

REPORT INFORMATION
  Report Type: Spontaneous
  Country: US (occurrence: US)
  Receive Date: 20180705
  Receipt Date: 20180705
  Transmission Date: 20181010
  Serious: Yes (Other)
  Sender: FDA-Public Use
  Company Number: US-LOREAL USA PRODUCTS, INC.-2018LOR00006

PATIENT
  Sex: Male

DRUGS (1)
  1. ANTHELIOS 40 [Suspect]
     Active Substance: AVOBENZONE\ECAMSULE\OCTOCRYLENE

REACTIONS (1)
  - Ear operation [Unknown]
